FAERS Safety Report 9321183 (Version 1)
Quarter: 2013Q2

REPORT INFORMATION
  Report Type: Spontaneous
  Country: DE (occurrence: None)
  Receive Date: 20130528
  Receipt Date: 20130528
  Transmission Date: 20140414
  Serious: Yes (Other)
  Sender: FDA-Public Use
  Company Number: TPA2013A04068

PATIENT
  Sex: Female

DRUGS (1)
  1. ADENURIC [Suspect]
     Route: 048

REACTIONS (1)
  - Cardiac failure [None]
